FAERS Safety Report 8138073-5 (Version None)
Quarter: 2012Q1

REPORT INFORMATION
  Report Type: 
  Country: None (occurrence: None)
  Receive Date: 20120213
  Receipt Date: 20120131
  Transmission Date: 20120608
  Serious: Yes (Death, Other)
  Sender: FDA-Public Use
  Company Number: 2012S1000027

PATIENT
  Sex: Male

DRUGS (1)
  1. INOMAX [Suspect]
     Indication: RESPIRATORY FAILURE
     Dosage: CONT;INH
     Route: 055
     Dates: start: 20110419, end: 20110420

REACTIONS (1)
  - NO THERAPEUTIC RESPONSE [None]
